FAERS Safety Report 5113956-9 (Version None)
Quarter: 2006Q3

REPORT INFORMATION
  Report Type: 
  Country: None (occurrence: None)
  Receive Date: 20060925
  Receipt Date: 20060913
  Transmission Date: 20061208
  Serious: Yes (Hospitalization)
  Sender: FDA-Public Use
  Company Number: FR-AVENTIS-200613173FR

PATIENT
  Age: 33 Year
  Sex: Male
  Weight: 63 kg

DRUGS (3)
  1. LOVENOX [Suspect]
     Indication: THROMBOSIS PROPHYLAXIS
     Route: 058
     Dates: start: 20060810, end: 20060817
  2. HEPARIN ^CHOAY^ [Concomitant]
     Route: 042
     Dates: start: 20060808, end: 20060809
  3. OFLOCET [Concomitant]
     Indication: EPIDIDYMITIS
     Route: 048
     Dates: start: 20060807

REACTIONS (2)
  - LEUKOCYTOSIS [None]
  - THROMBOCYTHAEMIA [None]
